FAERS Safety Report 6957634-X (Version None)
Quarter: 2010Q3

REPORT INFORMATION
  Report Type: 
  Country: None (occurrence: None)
  Receive Date: 20100831
  Receipt Date: 20100818
  Transmission Date: 20110219
  Serious: Yes (Hospitalization)
  Sender: FDA-Public Use
  Company Number: US-ELI_LILLY_AND_COMPANY-US201008005910

PATIENT
  Age: 83 Year
  Sex: Female

DRUGS (4)
  1. CYMBALTA [Suspect]
     Indication: DEPRESSION
     Dosage: 60 MG, 2/D
  2. XANAX [Concomitant]
  3. LIPITOR [Concomitant]
  4. AGGRENOX [Concomitant]

REACTIONS (1)
  - HOSPITALISATION [None]
